FAERS Safety Report 6123204-9 (Version None)
Quarter: 2009Q1

REPORT INFORMATION
  Report Type: 
  Country: None (occurrence: None)
  Receive Date: 20090318
  Receipt Date: 20080821
  Transmission Date: 20090719
  Serious: No
  Sender: FDA-Public Use
  Company Number: US-ABBOTT-08P-163-0472001-00

PATIENT
  Sex: Female
  Weight: 90.8 kg

DRUGS (1)
  1. BIAXIN XL [Suspect]
     Indication: SINUSITIS

REACTIONS (2)
  - GENITAL SWELLING [None]
  - PRURITUS GENITAL [None]
